FAERS Safety Report 11796608 (Version 2)
Quarter: 2015Q4

REPORT INFORMATION
  Report Type: Report from Study
  Country: US (occurrence: US)
  Receive Date: 20151203
  Receipt Date: 20151210
  Transmission Date: 20160305
  Serious: Yes (Other)
  Sender: FDA-Public Use
  Company Number: US-ROCHE-1668082

PATIENT
  Age: 63 Year
  Sex: Male
  Weight: 79.2 kg

DRUGS (2)
  1. VEMURAFENIB [Suspect]
     Active Substance: VEMURAFENIB
     Indication: NEOPLASM MALIGNANT
     Dosage: DATE OF LAST DOSE PRIOR TO SAE 28/OCT/2015
     Route: 048
     Dates: start: 20150722, end: 20151111
  2. VEMURAFENIB [Suspect]
     Active Substance: VEMURAFENIB
     Route: 048
     Dates: start: 20151120

REACTIONS (1)
  - Pseudolymphoma [Recovered/Resolved]

NARRATIVE: CASE EVENT DATE: 20151028
